FAERS Safety Report 7297661-9 (Version None)
Quarter: 2011Q1

REPORT INFORMATION
  Report Type: 
  Country: None (occurrence: None)
  Receive Date: 20110216
  Receipt Date: 20110210
  Transmission Date: 20110831
  Serious: Yes (Hospitalization, Other)
  Sender: FDA-Public Use
  Company Number: US-MERCK-1005USA02545

PATIENT
  Age: 58 Year
  Sex: Female

DRUGS (10)
  1. FLUDROCORTISONE [Concomitant]
     Route: 065
     Dates: start: 20050101, end: 20090101
  2. BUSPIRONE HYDROCHLORIDE [Concomitant]
     Indication: ANXIETY
     Route: 065
     Dates: start: 20050101, end: 20070101
  3. CIPROFLOXACIN [Concomitant]
     Indication: INFECTION
     Route: 065
     Dates: start: 20050101
  4. ALENDRONATE SODIUM [Suspect]
     Route: 048
     Dates: start: 20080401, end: 20090120
  5. DETROL LA [Concomitant]
     Indication: HYPERTONIC BLADDER
     Route: 065
     Dates: start: 20051202, end: 20080101
  6. PREVACID [Concomitant]
     Indication: DYSPEPSIA
     Route: 065
     Dates: start: 20050101, end: 20080101
  7. GABAPENTIN [Concomitant]
     Indication: NEURALGIA
     Route: 065
     Dates: start: 20050101, end: 20090101
  8. LEXAPRO [Concomitant]
     Indication: ANXIETY
     Route: 065
     Dates: start: 20050101, end: 20080101
  9. FOSAMAX [Suspect]
     Indication: OSTEOPOROSIS
     Route: 048
     Dates: start: 20050105, end: 20090102
  10. CIPROFLOXACIN [Concomitant]
     Route: 065
     Dates: start: 20080101, end: 20090101

REACTIONS (19)
  - OSTEONECROSIS OF JAW [None]
  - FEMUR FRACTURE [None]
  - OEDEMA MOUTH [None]
  - ABDOMINAL DISCOMFORT [None]
  - ORAL INFECTION [None]
  - IMPAIRED HEALING [None]
  - INJECTION SITE PAIN [None]
  - DRUG HYPERSENSITIVITY [None]
  - ADVERSE EVENT [None]
  - ANKLE FRACTURE [None]
  - CELLULITIS [None]
  - FISTULA [None]
  - ABSCESS [None]
  - GINGIVITIS [None]
  - OSTEOMYELITIS [None]
  - WRIST FRACTURE [None]
  - PELVIC PAIN [None]
  - ORAL DISORDER [None]
  - TOOTH DISORDER [None]
